FAERS Safety Report 21874214 (Version 4)
Quarter: 2023Q2

REPORT INFORMATION
  Report Type: Spontaneous
  Country: US (occurrence: US)
  Receive Date: 20230117
  Receipt Date: 20230411
  Transmission Date: 20230722
  Serious: No
  Sender: FDA-Public Use
  Company Number: US-Calliditas-2023CAL00006

PATIENT
  Age: 65 Year
  Sex: Female

DRUGS (1)
  1. TARPEYO [Suspect]
     Active Substance: BUDESONIDE
     Indication: Nephritic syndrome
     Dosage: 16 MG (4 CAPSULES) DAILY
     Route: 048
     Dates: start: 20220527

REACTIONS (7)
  - Contusion [Not Recovered/Not Resolved]
  - Dizziness [Recovered/Resolved]
  - Condition aggravated [Not Recovered/Not Resolved]
  - Intentional underdose [Recovered/Resolved]
  - Joint swelling [Unknown]
  - Insomnia [Unknown]
  - Nasal congestion [Unknown]

NARRATIVE: CASE EVENT DATE: 20220901
